FAERS Safety Report 24877283 (Version 1)
Quarter: 2025Q1

REPORT INFORMATION
  Report Type: Spontaneous
  Country: US (occurrence: US)
  Receive Date: 20250123
  Receipt Date: 20250123
  Transmission Date: 20250408
  Serious: Yes (Hospitalization, Other)
  Sender: ALKEM
  Company Number: US-ALKEM LABORATORIES LIMITED-US-ALKEM-2025-00480

PATIENT
  Age: 38 Year
  Sex: Male

DRUGS (11)
  1. DULOXETINE HYDROCHLORIDE [Suspect]
     Active Substance: DULOXETINE HYDROCHLORIDE
     Indication: Product used for unknown indication
     Dosage: 20 MILLIGRAM, QD
     Route: 065
  2. .DELTA.8-TETRAHYDROCANNABINOL [Suspect]
     Active Substance: .DELTA.8-TETRAHYDROCANNABINOL
     Indication: Product used for unknown indication
     Route: 065
  3. METHYLENE BLUE [Suspect]
     Active Substance: METHYLENE BLUE
     Indication: Product used for unknown indication
     Route: 065
  4. TIANEPTINE [Suspect]
     Active Substance: TIANEPTINE
     Indication: Anxiety disorder
     Route: 065
  5. TIANEPTINE [Suspect]
     Active Substance: TIANEPTINE
     Route: 065
  6. TIANEPTINE [Suspect]
     Active Substance: TIANEPTINE
     Route: 065
  7. TIANEPTINE [Suspect]
     Active Substance: TIANEPTINE
     Route: 065
  8. BUPRENORPHINE [Concomitant]
     Active Substance: BUPRENORPHINE
     Indication: Withdrawal syndrome
     Dosage: 0.15 MILLIGRAM, TID
     Route: 042
  9. BUPRENORPHINE\NALOXONE [Concomitant]
     Active Substance: BUPRENORPHINE\NALOXONE
     Indication: Withdrawal syndrome
     Route: 060
  10. BUPRENORPHINE\NALOXONE [Concomitant]
     Active Substance: BUPRENORPHINE\NALOXONE
     Route: 060
  11. HYDROXYZINE [Concomitant]
     Active Substance: HYDROXYZINE HYDROCHLORIDE
     Indication: Anxiety
     Dosage: 25 MILLIGRAM, TID
     Route: 065

REACTIONS (2)
  - Encephalopathy [Unknown]
  - Treatment noncompliance [Unknown]
